FAERS Safety Report 26049794 (Version 1)
Quarter: 2025Q4

REPORT INFORMATION
  Report Type: Spontaneous
  Country: US (occurrence: US)
  Receive Date: 20251115
  Receipt Date: 20251115
  Transmission Date: 20260117
  Serious: No
  Sender: RECKITT BENCKISER
  Company Number: US-PROD-AS2-212756134-20-25-USA-RB-0000341

PATIENT
  Sex: Female

DRUGS (2)
  1. DELSYM [Suspect]
     Active Substance: DEXTROMETHORPHAN
     Indication: Cough
     Dosage: UNKNOWN
     Route: 048
     Dates: start: 20250109
  2. DELSYM [Suspect]
     Active Substance: DEXTROMETHORPHAN
     Indication: Respiratory tract congestion

REACTIONS (1)
  - Drug ineffective [Not Recovered/Not Resolved]
